FAERS Safety Report 7098766-8 (Version None)
Quarter: 2010Q4

REPORT INFORMATION
  Report Type: 
  Country: None (occurrence: None)
  Receive Date: 20101112
  Receipt Date: 20080606
  Transmission Date: 20110411
  Serious: No
  Sender: FDA-Public Use
  Company Number: US-KINGPHARMUSA00001-K200800657

PATIENT
  Age: 46 Year
  Sex: Female

DRUGS (7)
  1. LEVOXYL [Suspect]
     Indication: GOITRE
     Dosage: 112 MCG, QD
     Route: 048
  2. LEVOXYL [Suspect]
     Dosage: 50 MCG, QD
     Route: 048
     Dates: start: 19950101
  3. LEVOXYL [Suspect]
     Dosage: 75 MCG, QD
     Route: 048
  4. LEVOXYL [Suspect]
     Dosage: 100 MCG, QOD
     Route: 048
     Dates: end: 20080516
  5. LEVOXYL [Suspect]
     Dosage: 88 MCG BY SHAVING 100 MCG TABELT, QD
     Route: 048
     Dates: start: 20080516
  6. DIAZEPAM [Concomitant]
  7. ACETAMINOPHEN [Concomitant]
     Indication: DYSMENORRHOEA

REACTIONS (4)
  - AGITATION [None]
  - CONSTIPATION [None]
  - PARANOIA [None]
  - PERIPHERAL COLDNESS [None]
